FAERS Safety Report 24768778 (Version 1)
Quarter: 2024Q4

REPORT INFORMATION
  Report Type: Spontaneous
  Country: IN (occurrence: IN)
  Receive Date: 20241224
  Receipt Date: 20241224
  Transmission Date: 20250115
  Serious: Yes (Other)
  Sender: BIOLOGICAL E. LIMITED
  Company Number: IN-BELUSA-2024BELLIT0124

PATIENT

DRUGS (1)
  1. PHENYLEPHRINE HYDROCHLORIDE [Suspect]
     Active Substance: PHENYLEPHRINE HYDROCHLORIDE
     Indication: Priapism
     Dosage: 100 MG EVERY 5 MINUTES UP TO A MAXIMUM OF 500MG
     Route: 065

REACTIONS (1)
  - Drug ineffective for unapproved indication [Unknown]
